FAERS Safety Report 8790128 (Version 1)
Quarter: 2012Q4

REPORT INFORMATION
  Report Type: Report from Study
  Country: US (occurrence: US)
  Receive Date: 20120917
  Receipt Date: 20120917
  Transmission Date: 20130627
  Serious: Yes (Hospitalization)
  Sender: FDA-Public Use
  Company Number: US-AMGEN-USACT2012053429

PATIENT
  Age: 62 Year
  Sex: Male
  Weight: 81.59 kg

DRUGS (14)
  1. PANITUMUMAB [Suspect]
     Indication: COLON CANCER
     Dosage: 4.5 mg/kg, q2wk
     Route: 042
     Dates: start: 20120626, end: 20120815
  2. IRINOTECAN [Concomitant]
     Indication: COLON CANCER
     Dosage: 60 mg/m2, q2wk
     Route: 042
     Dates: start: 20120626, end: 20120815
  3. ERLOTINIB [Concomitant]
     Indication: COLON CANCER
     Dosage: 100 mg, qd
     Route: 048
     Dates: start: 20120626, end: 20120817
  4. ALCLOMETASONE [Concomitant]
     Dosage: UNK
     Route: 061
     Dates: start: 20120717
  5. FENTANYL [Concomitant]
     Dosage: UNK
     Dates: start: 20120718
  6. HYDROMORPHONE [Concomitant]
     Dosage: UNK
     Dates: start: 20120717
  7. MINOCYCLINE [Concomitant]
     Dosage: UNK
     Dates: start: 20120724
  8. MAGNESIUM OXIDE [Concomitant]
     Dosage: UNK
     Dates: start: 20120726
  9. PROCHLORPERAZINE [Concomitant]
     Dosage: UNK
     Dates: start: 20120626
  10. MEGESTROL [Concomitant]
     Dosage: UNK
     Dates: start: 20120726
  11. ONDANSETRON [Concomitant]
     Dosage: 8 mg, UNK
     Dates: start: 20120816
  12. METOCLOPRAMIDE [Concomitant]
     Dosage: UNK
     Dates: start: 20120816
  13. SUCRALFATE [Concomitant]
     Dosage: UNK
     Dates: start: 20120816
  14. LOPERAMIDE [Concomitant]
     Dosage: UNK
     Dates: start: 20120808

REACTIONS (1)
  - Pneumonitis [Unknown]
